FAERS Safety Report 19995614 (Version 1)
Quarter: 2021Q4

REPORT INFORMATION
  Report Type: Spontaneous
  Country: US (occurrence: US)
  Receive Date: 20211026
  Receipt Date: 20211026
  Transmission Date: 20220303
  Serious: Yes (Hospitalization)
  Sender: FDA-Public Use
  Company Number: None

PATIENT
  Age: 21 Month
  Sex: Male
  Weight: 13.62 kg

DRUGS (1)
  1. VINCRISTINE [Suspect]
     Active Substance: VINCRISTINE
     Indication: Rhabdomyosarcoma
     Dosage: ?          OTHER FREQUENCY:WEEKLY;
     Route: 042
     Dates: start: 20210901, end: 20211025

REACTIONS (9)
  - Cyanosis [None]
  - Oral pain [None]
  - Pain in jaw [None]
  - Blood pressure increased [None]
  - Cough [None]
  - Respiratory distress [None]
  - Neurotoxicity [None]
  - Laryngeal disorder [None]
  - Oxygen saturation abnormal [None]

NARRATIVE: CASE EVENT DATE: 20211025
